FAERS Safety Report 7544347-9 (Version None)
Quarter: 2011Q2

REPORT INFORMATION
  Report Type: 
  Country: None (occurrence: None)
  Receive Date: 20110613
  Receipt Date: 20080121
  Transmission Date: 20111010
  Serious: Yes (Death, Hospitalization)
  Sender: FDA-Public Use
  Company Number: PHHY2008US00852

PATIENT
  Sex: Female

DRUGS (4)
  1. KLONOPIN [Concomitant]
  2. CLOZAPINE [Suspect]
     Indication: BIPOLAR DISORDER
     Dosage: 200 MG, UNK
     Route: 048
  3. NORTRIPTYLINE HCL [Concomitant]
     Dosage: UNKNOWN
  4. NAMENDA [Concomitant]

REACTIONS (1)
  - SUICIDE ATTEMPT [None]
